FAERS Safety Report 10268901 (Version 1)
Quarter: 2014Q2

REPORT INFORMATION
  Report Type: Spontaneous
  Country: TR (occurrence: TR)
  Receive Date: 20140630
  Receipt Date: 20140630
  Transmission Date: 20141212
  Serious: Yes (Death)
  Sender: FDA-Public Use
  Company Number: PHHY2014TR076712

PATIENT
  Age: 82 Year
  Sex: Male

DRUGS (1)
  1. BROMOCRIPTINE [Suspect]
     Indication: NEUROLEPTIC MALIGNANT SYNDROME
     Dosage: 7.5 MG, PER DAY

REACTIONS (2)
  - Pneumonia aspiration [Fatal]
  - Drug ineffective [Unknown]
